FAERS Safety Report 23177558 (Version 1)
Quarter: 2023Q4

REPORT INFORMATION
  Report Type: Spontaneous
  Country: IN (occurrence: IN)
  Receive Date: 20231113
  Receipt Date: 20231113
  Transmission Date: 20240109
  Serious: Yes (Other)
  Sender: FDA-Public Use
  Company Number: IN-FreseniusKabi-FK202318175

PATIENT
  Age: 50 Year
  Sex: Female

DRUGS (6)
  1. DOXORUBICIN [Suspect]
     Active Substance: DOXORUBICIN
     Indication: Diffuse large B-cell lymphoma
     Dosage: MAXIMUM DOSE INTENSITY OF DOSE ADJUSTED EPOCH-R  REGIMEN REACHED WAS LEVEL 3.
  2. ETOPOSIDE [Suspect]
     Active Substance: ETOPOSIDE
     Indication: Diffuse large B-cell lymphoma
     Dosage: MAXIMUM DOSE INTENSITY OF DOSE ADJUSTED EPOCH-R ?REGIMEN REACHED WAS LEVEL 3.
  3. PREDNISONE [Suspect]
     Active Substance: PREDNISONE
     Indication: Diffuse large B-cell lymphoma
     Dosage: MAXIMUM DOSE INTENSITY OF DOSE ADJUSTED EPOCH-R ?REGIMEN REACHED WAS LEVEL 3.
  4. VINCRISTINE [Suspect]
     Active Substance: VINCRISTINE
     Indication: Diffuse large B-cell lymphoma
     Dosage: MAXIMUM DOSE INTENSITY OF DOSE ADJUSTED EPOCH-R ?REGIMEN REACHED WAS LEVEL 3.
  5. CYCLOPHOSPHAMIDE [Suspect]
     Active Substance: CYCLOPHOSPHAMIDE
     Indication: Diffuse large B-cell lymphoma
     Dosage: MAXIMUM DOSE INTENSITY OF DOSE ADJUSTED EPOCH-R ?REGIMEN REACHED WAS LEVEL 3.
  6. RITUXIMAB [Suspect]
     Active Substance: RITUXIMAB
     Indication: Diffuse large B-cell lymphoma
     Dosage: MAXIMUM DOSE INTENSITY OF DOSE ADJUSTED EPOCH-R ?REGIMEN REACHED WAS LEVEL 3.

REACTIONS (1)
  - Febrile neutropenia [Recovered/Resolved]
